FAERS Safety Report 20125441 (Version 1)
Quarter: 2021Q4

REPORT INFORMATION
  Report Type: Spontaneous
  Country: IT (occurrence: IT)
  Receive Date: 20211129
  Receipt Date: 20211129
  Transmission Date: 20220303
  Serious: Yes (Hospitalization)
  Sender: FDA-Public Use
  Company Number: IT-STADA-232946

PATIENT
  Age: 62 Year
  Sex: Male
  Weight: 78.5 kg

DRUGS (7)
  1. PREDNISONE [Suspect]
     Active Substance: PREDNISONE
     Indication: Chronic graft versus host disease
     Dosage: 75 MILLIGRAM, QD
     Route: 048
     Dates: start: 20210104, end: 20210111
  2. PREDNISONE [Suspect]
     Active Substance: PREDNISONE
     Dosage: 18.75 MILLIGRAM, QD
     Route: 048
     Dates: start: 20210201, end: 20210215
  3. PREDNISONE [Suspect]
     Active Substance: PREDNISONE
     Dosage: 12.5 MILLIGRAM, Q2D
     Route: 048
     Dates: start: 20210302, end: 20210308
  4. PREDNISONE [Suspect]
     Active Substance: PREDNISONE
     Dosage: 18.75 MILLIGRAM, Q2D
     Route: 048
     Dates: start: 20210216, end: 20210301
  5. PREDNISONE [Suspect]
     Active Substance: PREDNISONE
     Dosage: 37.5 MILLIGRAM, QD
     Route: 048
     Dates: start: 20210112, end: 20210131
  6. PREDNISONE [Suspect]
     Active Substance: PREDNISONE
     Dosage: 6.25 MILLIGRAM, Q2D
     Route: 048
     Dates: start: 20210309, end: 20210315
  7. POSACONAZOLE [Suspect]
     Active Substance: POSACONAZOLE
     Indication: Chronic graft versus host disease
     Dosage: UNK
     Route: 048
     Dates: start: 20201229, end: 20210513

REACTIONS (1)
  - Jaundice [Recovering/Resolving]

NARRATIVE: CASE EVENT DATE: 20210914
